FAERS Safety Report 8111006-3 (Version None)
Quarter: 2012Q1

REPORT INFORMATION
  Report Type: 
  Country: None (occurrence: None)
  Receive Date: 20120203
  Receipt Date: 20110208
  Transmission Date: 20120608
  Serious: No
  Sender: FDA-Public Use
  Company Number: US-GLAXOSMITHKLINE-A0912518A

PATIENT
  Age: 52 Year
  Sex: Female

DRUGS (7)
  1. LAMOTRIGINE [Suspect]
     Indication: BIPOLAR DISORDER
     Dosage: 200MG AT NIGHT
     Route: 048
  2. WELLBUTRIN [Concomitant]
  3. VITAMIN TAB [Concomitant]
  4. CYTOMEL [Concomitant]
  5. TOPAMAX [Concomitant]
  6. LEVOXYL [Concomitant]
  7. ZYRTEC [Suspect]

REACTIONS (4)
  - RASH PRURITIC [None]
  - SKIN ULCER [None]
  - HYPERSENSITIVITY [None]
  - RASH GENERALISED [None]
